FAERS Safety Report 5014950-9 (Version None)
Quarter: 2006Q2

REPORT INFORMATION
  Report Type: 
  Country: None (occurrence: None)
  Receive Date: 20060412
  Receipt Date: 20050901
  Transmission Date: 20061013
  Serious: Yes (Other)
  Sender: FDA-Public Use
  Company Number: PHEH2005US07163

PATIENT
  Age: 14 Year
  Sex: Male

DRUGS (1)
  1. FORADIL [Suspect]
     Dosage: INHALATION
     Route: 055

REACTIONS (3)
  - CHEST PAIN [None]
  - HEART RATE INCREASED [None]
  - SUPRAVENTRICULAR TACHYCARDIA [None]
